FAERS Safety Report 20948382 (Version 1)
Quarter: 2022Q2

REPORT INFORMATION
  Report Type: Spontaneous
  Country: FR (occurrence: FR)
  Receive Date: 20220611
  Receipt Date: 20220611
  Transmission Date: 20220721
  Serious: Yes (Hospitalization)
  Sender: FDA-Public Use
  Company Number: None

PATIENT
  Age: 69 Year
  Sex: Male

DRUGS (6)
  1. FLUOROURACIL [Suspect]
     Active Substance: FLUOROURACIL
     Indication: Adenocarcinoma pancreas
     Dosage: UNIT DOSE : 4800 MG , FREQUENCY TIME : 1 TOTAL , DURATION : 1 DAYS
     Route: 041
     Dates: start: 20220428, end: 20220428
  2. OXALIPLATIN [Suspect]
     Active Substance: OXALIPLATIN
     Indication: Adenocarcinoma pancreas
     Dosage: UNIT DOSE : 175 MG , FREQUENCY TIME : 1 TOTAL , DURATION : 1DAYS
     Route: 042
     Dates: start: 20220428, end: 20220428
  3. IRINOTECAN [Suspect]
     Active Substance: IRINOTECAN
     Indication: Adenocarcinoma pancreas
     Dosage: UNIT DOSE :290 MG , FREQUENCY TIME : 1 TOTAL , DURATION : 1 DAYS
     Route: 041
     Dates: start: 20220428, end: 20220428
  4. ELIQUIS [Suspect]
     Active Substance: APIXABAN
     Dosage: FORM STRENGTH : 5MG ,UNIT DOSE : 10 MG , FREQUENCY TIME : 1 DAYS , DURATION : 24 DAYS
     Route: 048
     Dates: start: 20220414, end: 20220508
  5. METHYLPREDNISOLONE [Concomitant]
     Active Substance: METHYLPREDNISOLONE
     Dosage: UNIT DOSE : 60MG , FREQUENCY TIME : 1 TOTAL , DURATION : 1 DAYS
     Route: 048
     Dates: start: 20220428, end: 20220428
  6. LEVOLEUCOVORIN CALCIUM [Concomitant]
     Active Substance: LEVOLEUCOVORIN CALCIUM
     Dosage: UNIT DOSE : 410 MG , FREQUENCY TIME : 1 TOTAL , DURATION : 1 DAYS
     Route: 048
     Dates: start: 20220428, end: 20220428

REACTIONS (1)
  - Ischaemic stroke [Not Recovered/Not Resolved]

NARRATIVE: CASE EVENT DATE: 20220508
